FAERS Safety Report 9321562 (Version 1)
Quarter: 2013Q2

REPORT INFORMATION
  Report Type: Spontaneous
  Country: US (occurrence: US)
  Receive Date: 20130531
  Receipt Date: 20130531
  Transmission Date: 20140414
  Serious: Yes (Hospitalization, Other)
  Sender: FDA-Public Use
  Company Number: US-ELI_LILLY_AND_COMPANY-US201305007604

PATIENT
  Age: 79 Year
  Sex: Female

DRUGS (6)
  1. HUMALOG LISPRO [Suspect]
     Indication: DIABETES MELLITUS
     Dosage: UNK UNK, UNKNOWN
     Dates: end: 201211
  2. LIPITOR [Concomitant]
     Dosage: UNK, UNKNOWN
  3. WARFARIN [Concomitant]
     Dosage: UNK, UNKNOWN
  4. LEVOTHYROXINE [Concomitant]
     Dosage: UNK, UNKNOWN
  5. LISINOPRIL [Concomitant]
     Dosage: UNK, UNKNOWN
  6. LANTUS [Concomitant]
     Dosage: UNK, UNKNOWN

REACTIONS (1)
  - Loss of consciousness [Recovered/Resolved]
